FAERS Safety Report 14240073 (Version 1)
Quarter: 2017Q4

REPORT INFORMATION
  Report Type: Report from Study
  Country: CO (occurrence: CO)
  Receive Date: 20171130
  Receipt Date: 20171130
  Transmission Date: 20180321
  Serious: Yes (Other)
  Sender: FDA-Public Use
  Company Number: CO-ASTELLAS-2017US049632

PATIENT
  Age: 14 Year
  Sex: Male
  Weight: 28 kg

DRUGS (2)
  1. TACROLIMUS. [Suspect]
     Active Substance: TACROLIMUS
     Indication: RENAL TRANSPLANT
     Dosage: 11 MG (COMBINATION OF 1MG AND 5MG CAPS), ONCE DAILY
     Route: 048
     Dates: start: 20161123
  2. TACROLIMUS. [Suspect]
     Active Substance: TACROLIMUS
     Indication: RENAL TRANSPLANT
     Dosage: 11 MG (COMBINATION OF 1MG AND 5MG CAPS), ONCE DAILY
     Route: 048
     Dates: start: 20161123

REACTIONS (3)
  - Dysuria [Recovered/Resolved]
  - Ear haemorrhage [Recovered/Resolved]
  - Headache [Recovered/Resolved]

NARRATIVE: CASE EVENT DATE: 201709
